FAERS Safety Report 7758247-2 (Version None)
Quarter: 2011Q3

REPORT INFORMATION
  Report Type: 
  Country: None (occurrence: None)
  Receive Date: 20110919
  Receipt Date: 20110914
  Transmission Date: 20111222
  Serious: Yes (Death, Hospitalization)
  Sender: FDA-Public Use
  Company Number: IT-BAYER-2011-044204

PATIENT
  Age: 56 Year
  Sex: Male
  Weight: 45 kg

DRUGS (1)
  1. SORAFENIB (RAF KINASE INHIBITOR) [Suspect]
     Indication: SALIVARY GLAND CANCER
     Dosage: 400 MG, BID
     Route: 048
     Dates: start: 20110310, end: 20110521

REACTIONS (3)
  - PYREXIA [None]
  - CONVULSION [None]
  - MENINGITIS PNEUMOCOCCAL [None]
